FAERS Safety Report 9863364 (Version 1)
Quarter: 2014Q1

REPORT INFORMATION
  Report Type: Spontaneous
  Country: IN (occurrence: IN)
  Receive Date: 20140203
  Receipt Date: 20140203
  Transmission Date: 20141002
  Serious: Yes (Hospitalization, Other)
  Sender: FDA-Public Use
  Company Number: IN-ROXANE LABORATORIES, INC.-2014-RO-00119RO

PATIENT
  Age: 36 Year
  Sex: Male

DRUGS (3)
  1. AZATHIOPRINE [Suspect]
     Indication: RENAL TRANSPLANT
  2. PREDNISONE [Suspect]
     Indication: RENAL TRANSPLANT
  3. CYCLOSPORINE [Suspect]
     Indication: RENAL TRANSPLANT

REACTIONS (5)
  - Pancreatitis acute [Unknown]
  - Pulmonary tuberculosis [Unknown]
  - Pneumonia klebsiella [Unknown]
  - Transplant dysfunction [Recovered/Resolved]
  - Klebsiella infection [Unknown]
